FAERS Safety Report 17488070 (Version 2)
Quarter: 2021Q3

REPORT INFORMATION
  Report Type: Spontaneous
  Country: US (occurrence: US)
  Receive Date: 20200303
  Receipt Date: 20210810
  Transmission Date: 20211014
  Serious: No
  Sender: FDA-Public Use
  Company Number: US-PFIZER INC-2020093015

PATIENT
  Age: 70 Year
  Sex: Female
  Weight: 73.92 kg

DRUGS (23)
  1. ROFECOXIB [Suspect]
     Active Substance: ROFECOXIB
     Dosage: UNK
  2. PROPOXYPHENE. [Suspect]
     Active Substance: PROPOXYPHENE
     Dosage: UNK
  3. TRIPTAN [OXITRIPTAN] [Suspect]
     Active Substance: OXITRIPTAN
     Dosage: UNK
  4. IBUPROFEN. [Suspect]
     Active Substance: IBUPROFEN
     Dosage: UNK
  5. LEFLUNOMIDE. [Suspect]
     Active Substance: LEFLUNOMIDE
     Dosage: UNK
  6. METHADONE [Suspect]
     Active Substance: METHADONE HYDROCHLORIDE
     Dosage: UNK
  7. SINGULAIR [Suspect]
     Active Substance: MONTELUKAST SODIUM
     Dosage: UNK
  8. TORSEMIDE. [Suspect]
     Active Substance: TORSEMIDE
  9. LINCOMYCIN HCL [Suspect]
     Active Substance: LINCOMYCIN HYDROCHLORIDE
     Dosage: UNK
  10. ESTER C [ASCORBIC ACID] [Suspect]
     Active Substance: ASCORBIC ACID
     Dosage: UNK
  11. NOVOCAINE [Suspect]
     Active Substance: PROCAINE
     Dosage: UNK
  12. BACLOFEN. [Suspect]
     Active Substance: BACLOFEN
     Dosage: UNK
  13. ERYTHROMYCIN. [Suspect]
     Active Substance: ERYTHROMYCIN
     Dosage: UNK
  14. ETODOLAC. [Suspect]
     Active Substance: ETODOLAC
     Dosage: UNK
  15. TETANUS TOXOID ADSORBED (VACCINE) [Suspect]
     Active Substance: CLOSTRIDIUM TETANI TOXOID ANTIGEN (FORMALDEHYDE INACTIVATED)
     Dosage: UNK
  16. TIAZAC [Suspect]
     Active Substance: DILTIAZEM HYDROCHLORIDE
     Dosage: UNK
  17. TETRACYCLINE HCL [Suspect]
     Active Substance: TETRACYCLINE HYDROCHLORIDE
     Dosage: UNK
  18. PHENERGAN [Suspect]
     Active Substance: PROMETHAZINE HYDROCHLORIDE
     Dosage: UNK
  19. ALENDRONATE [Suspect]
     Active Substance: ALENDRONATE SODIUM
  20. CLINDAMYCIN. [Suspect]
     Active Substance: CLINDAMYCIN
     Dosage: UNK
  21. MELOXICAM. [Suspect]
     Active Substance: MELOXICAM
     Dosage: UNK
  22. ANTITOXIN VENOM [Suspect]
     Active Substance: IMMUNE GLOBULIN ANTIVENIN NOS
     Dosage: UNK
  23. ALLEGRA [Suspect]
     Active Substance: FEXOFENADINE HYDROCHLORIDE

REACTIONS (1)
  - Drug hypersensitivity [Unknown]
